FAERS Safety Report 14014836 (Version 1)
Quarter: 2017Q3

REPORT INFORMATION
  Report Type: Spontaneous
  Country: US (occurrence: US)
  Receive Date: 20170927
  Receipt Date: 20170927
  Transmission Date: 20171128
  Serious: Yes (Other)
  Sender: FDA-Public Use
  Company Number: None

PATIENT
  Age: 77 Year
  Sex: Female
  Weight: 71.73 kg

DRUGS (16)
  1. ZOFRAN [Concomitant]
     Active Substance: ONDANSETRON HYDROCHLORIDE
  2. HYDRALAZINE [Concomitant]
     Active Substance: HYDRALAZINE HYDROCHLORIDE
  3. METHADONE [Concomitant]
     Active Substance: METHADONE HYDROCHLORIDE
  4. MEGESTROL ACETATE. [Concomitant]
     Active Substance: MEGESTROL ACETATE
  5. LORAZEPAM. [Concomitant]
     Active Substance: LORAZEPAM
  6. SENNA LAXATIVE [Concomitant]
     Active Substance: SENNOSIDES
  7. MAGNESIUM [Concomitant]
     Active Substance: MAGNESIUM
  8. ASPIRIN. [Concomitant]
     Active Substance: ASPIRIN
  9. OXYCODONE [Concomitant]
     Active Substance: OXYCODONE
  10. LOSARTAN. [Concomitant]
     Active Substance: LOSARTAN
  11. DOC-Q-LAX [Concomitant]
  12. ORVASTATIN [Concomitant]
  13. CAPECITABINE. [Suspect]
     Active Substance: CAPECITABINE
     Indication: PANCREATIC CARCINOMA
     Route: 048
  14. METFORMIN [Concomitant]
     Active Substance: METFORMIN HYDROCHLORIDE
  15. LACTULOSE. [Concomitant]
     Active Substance: LACTULOSE
  16. CARVEDILOL. [Concomitant]
     Active Substance: CARVEDILOL

REACTIONS (5)
  - Fatigue [None]
  - Melaena [None]
  - Enteritis [None]
  - Decreased appetite [None]
  - Asthenia [None]

NARRATIVE: CASE EVENT DATE: 20170919
